FAERS Safety Report 7442783-2 (Version None)
Quarter: 2011Q2

REPORT INFORMATION
  Report Type: 
  Country: None (occurrence: None)
  Receive Date: 20110428
  Receipt Date: 20110419
  Transmission Date: 20111010
  Serious: Yes (Other)
  Sender: FDA-Public Use
  Company Number: CA-JNJFOC-20110300332

PATIENT
  Sex: Male
  Weight: 71 kg

DRUGS (13)
  1. FOLIC ACID [Concomitant]
     Route: 048
  2. SURFAK [Concomitant]
     Route: 048
  3. GOLIMUMAB [Suspect]
     Route: 058
  4. HYDROCHLOROTHIAZIDE [Concomitant]
     Route: 048
  5. CRESTOR [Concomitant]
     Route: 048
  6. METHOTREXATE [Suspect]
     Indication: RHEUMATOID ARTHRITIS
     Route: 048
  7. PREDNISONE [Concomitant]
     Route: 048
  8. METAMUCIL-2 [Concomitant]
     Route: 048
  9. GOLIMUMAB [Suspect]
     Indication: RHEUMATOID ARTHRITIS
     Route: 058
  10. FINASTERIDE [Concomitant]
     Route: 048
  11. METHOTREXATE [Concomitant]
     Route: 048
  12. EXTRA STRENGTH TYLENOL [Concomitant]
     Route: 048
  13. DIDROCAL [Concomitant]
     Route: 048

REACTIONS (1)
  - GASTRIC CANCER [None]
